FAERS Safety Report 24638240 (Version 1)
Quarter: 2024Q4

REPORT INFORMATION
  Report Type: Spontaneous
  Country: US (occurrence: None)
  Receive Date: 20241119
  Receipt Date: 20241119
  Transmission Date: 20250115
  Serious: Yes (Hospitalization)
  Sender: Public
  Company Number: None

PATIENT
  Age: 40 Year
  Sex: Male

DRUGS (1)
  1. ORLISTAT [Suspect]
     Active Substance: ORLISTAT
     Indication: Weight decreased
     Dosage: FREQUENCY : 3 TIMES A DAY;?
     Route: 048

REACTIONS (2)
  - Nephrolithiasis [None]
  - Back pain [None]

NARRATIVE: CASE EVENT DATE: 20240523
